FAERS Safety Report 12245420 (Version 1)
Quarter: 2016Q2

REPORT INFORMATION
  Report Type: Spontaneous
  Country: US (occurrence: US)
  Receive Date: 20160407
  Receipt Date: 20160407
  Transmission Date: 20160815
  Serious: No
  Sender: FDA-Public Use
  Company Number: US-BIOGEN-2016BI00212767

PATIENT
  Sex: Male

DRUGS (2)
  1. TYSABRI [Suspect]
     Active Substance: NATALIZUMAB
     Indication: MULTIPLE SCLEROSIS
     Dates: start: 20050219
  2. TYSABRI [Suspect]
     Active Substance: NATALIZUMAB
     Dates: end: 20160219

REACTIONS (1)
  - Progressive multiple sclerosis [Not Recovered/Not Resolved]
